FAERS Safety Report 17874244 (Version 1)
Quarter: 2020Q2

REPORT INFORMATION
  Report Type: Report from Study
  Country: None (occurrence: US)
  Receive Date: 20200609
  Receipt Date: 20200609
  Transmission Date: 20200714
  Serious: Yes (Other)
  Sender: FDA-Public Use
  Company Number: US-ABBVIE-20K-163-3217552-00

PATIENT
  Age: 67 Year
  Sex: Female

DRUGS (5)
  1. HUMIRA [Suspect]
     Active Substance: ADALIMUMAB
     Route: 058
  2. HUMIRA [Suspect]
     Active Substance: ADALIMUMAB
     Indication: RHEUMATOID ARTHRITIS
     Dosage: CITRATE FREE
     Route: 058
  3. FORTEO [Concomitant]
     Active Substance: TERIPARATIDE
     Indication: BONE DISORDER
  4. PREDNISONE. [Concomitant]
     Active Substance: PREDNISONE
     Indication: PRODUCT USED FOR UNKNOWN INDICATION
     Dosage: TAPERING OFF
  5. HUMIRA [Suspect]
     Active Substance: ADALIMUMAB
     Indication: RHEUMATOID ARTHRITIS
     Route: 058

REACTIONS (17)
  - Hyperaesthesia [Unknown]
  - Nerve block [Unknown]
  - Injection site discolouration [Unknown]
  - Stress [Unknown]
  - Rheumatoid arthritis [Unknown]
  - Vitreous detachment [Unknown]
  - Osteoporosis [Unknown]
  - Erythema [Unknown]
  - Spinal fusion surgery [Unknown]
  - Photopsia [Unknown]
  - Injection site bruising [Unknown]
  - Osteopenia [Unknown]
  - C-reactive protein increased [Unknown]
  - Vitreous floaters [Unknown]
  - Skin papilloma [Unknown]
  - Injection site pain [Unknown]
  - Respiratory tract infection [Unknown]

NARRATIVE: CASE EVENT DATE: 20200307
